FAERS Safety Report 6465128-3 (Version None)
Quarter: 2009Q4

REPORT INFORMATION
  Report Type: 
  Country: None (occurrence: None)
  Receive Date: 20091201
  Receipt Date: 20090521
  Transmission Date: 20100525
  Serious: No
  Sender: FDA-Public Use
  Company Number: US-AMGEN-COG343755

PATIENT
  Sex: Female
  Weight: 112.6 kg

DRUGS (2)
  1. ENBREL [Suspect]
     Indication: RHEUMATOID ARTHRITIS
     Route: 058
     Dates: start: 20060302
  2. ULTRAM [Concomitant]
     Dates: start: 20070501

REACTIONS (2)
  - INJECTION SITE PAIN [None]
  - MEDICAL DEVICE COMPLICATION [None]
